FAERS Safety Report 5757945-X (Version None)
Quarter: 2008Q2

REPORT INFORMATION
  Report Type: 
  Country: None (occurrence: None)
  Receive Date: 20080602
  Receipt Date: 20080602
  Transmission Date: 20081010
  Serious: Yes (Life-Threatening, Hospitalization)
  Sender: FDA-Public Use
  Company Number: None

PATIENT
  Age: 43 Year
  Sex: Male
  Weight: 83.9154 kg

DRUGS (2)
  1. IMODIUM A-D [Suspect]
     Indication: DIARRHOEA
     Dosage: 2 MG 2 PO/1 DOSE AM AND PM
     Route: 048
  2. GAS-X 125 MG NOVARTIS CONSUMER HEALTH [Suspect]
     Indication: FLATULENCE
     Dosage: 250 MG 1 PO/1 DOSE
     Route: 048

REACTIONS (1)
  - COLITIS ISCHAEMIC [None]
